FAERS Safety Report 7769978-2 (Version None)
Quarter: 2011Q3

REPORT INFORMATION
  Report Type: 
  Country: None (occurrence: None)
  Receive Date: 20110922
  Receipt Date: 20110912
  Transmission Date: 20111222
  Serious: Yes (Hospitalization)
  Sender: FDA-Public Use
  Company Number: KE-GLAXOSMITHKLINE-R0015948F

PATIENT
  Sex: Male

DRUGS (11)
  1. TRITANRIX-HEPB/HIB [Suspect]
     Route: 030
     Dates: start: 20101111, end: 20101111
  2. POLIOVAX [Suspect]
     Route: 048
     Dates: start: 20101111, end: 20101111
  3. COTRIM [Concomitant]
     Indication: PROPHYLAXIS
     Dosage: 5ML PER DAY
     Route: 048
     Dates: start: 20101201
  4. RIFAMPICIN [Concomitant]
     Indication: TUBERCULOSIS
     Dosage: 60MG PER DAY
     Route: 048
     Dates: start: 20110602
  5. ABACAVIR [Suspect]
     Indication: HIV INFECTION
     Dosage: 8ML PER DAY
     Route: 048
     Dates: start: 20110318
  6. BLINDED VACCINE [Suspect]
     Route: 030
     Dates: start: 20101111, end: 20101111
  7. LAMIVUDINE [Suspect]
     Indication: HIV INFECTION
     Dosage: 8ML PER DAY
     Route: 048
     Dates: start: 20110318
  8. ZIDOVUDINE [Concomitant]
     Indication: HIV INFECTION
     Dosage: 18ML PER DAY
     Route: 048
     Dates: start: 20110614
  9. PYRAZINAMIDE [Concomitant]
     Indication: TUBERCULOSIS
     Dosage: 150MG PER DAY
     Route: 048
     Dates: start: 20110602
  10. EFAVIRENZ [Suspect]
     Indication: HIV INFECTION
     Dosage: 100MG PER DAY
     Route: 048
     Dates: start: 20110602
  11. ISONIAZID [Concomitant]
     Indication: TUBERCULOSIS
     Dosage: 30MG PER DAY
     Route: 048
     Dates: start: 20110602

REACTIONS (1)
  - IMMUNE RECONSTITUTION SYNDROME [None]
